FAERS Safety Report 25398602 (Version 1)
Quarter: 2025Q2

REPORT INFORMATION
  Report Type: Spontaneous
  Country: GB (occurrence: GB)
  Receive Date: 20250604
  Receipt Date: 20250604
  Transmission Date: 20250717
  Serious: Yes (Hospitalization, Other)
  Sender: ASTELLAS
  Company Number: GB-ASTELLAS-2025-AER-029755

PATIENT
  Age: 56 Year
  Sex: Male

DRUGS (2)
  1. CRESEMBA [Suspect]
     Active Substance: ISAVUCONAZONIUM SULFATE
     Indication: Aspergillus infection
     Dosage: 200 MG, EVERY 8 HOURS ON DAY 1 AND 2
     Route: 065
  2. CRESEMBA [Suspect]
     Active Substance: ISAVUCONAZONIUM SULFATE
     Dosage: 200 MG, ONCE DAILY
     Route: 065

REACTIONS (4)
  - Pneumonia [Unknown]
  - Acute on chronic liver failure [Unknown]
  - Gastrointestinal toxicity [Recovered/Resolved]
  - Respiratory disorder [Unknown]
